FAERS Safety Report 7050435-6 (Version None)
Quarter: 2010Q4

REPORT INFORMATION
  Report Type: 
  Country: None (occurrence: None)
  Receive Date: 20101018
  Receipt Date: 20101014
  Transmission Date: 20110411
  Serious: Yes (Hospitalization, Other)
  Sender: FDA-Public Use
  Company Number: US-CEPHALON-2010005236

PATIENT
  Sex: Male
  Weight: 75 kg

DRUGS (2)
  1. NUVIGIL [Suspect]
     Indication: TRAUMATIC BRAIN INJURY
     Route: 048
     Dates: start: 20100719, end: 20100924
  2. NUVIGIL [Suspect]
     Indication: SOMNOLENCE

REACTIONS (1)
  - PSYCHOTIC DISORDER [None]
